FAERS Safety Report 16141183 (Version 1)
Quarter: 2019Q2

REPORT INFORMATION
  Report Type: Spontaneous
  Country: US (occurrence: US)
  Receive Date: 20190330
  Receipt Date: 20190330
  Transmission Date: 20190711
  Serious: Yes (Disabling)
  Sender: FDA-Public Use
  Company Number: None

PATIENT
  Age: 33 Year
  Sex: Female

DRUGS (1)
  1. HYDROCORTIZONE [Suspect]
     Active Substance: HYDROCORTISONE
     Indication: ECZEMA
     Dates: start: 20001212, end: 20170907

REACTIONS (5)
  - Rash erythematous [None]
  - Pruritus [None]
  - Pregnancy [None]
  - Skin exfoliation [None]
  - Rash generalised [None]

NARRATIVE: CASE EVENT DATE: 20170907
